FAERS Safety Report 6069491-7 (Version None)
Quarter: 2009Q1

REPORT INFORMATION
  Report Type: 
  Country: None (occurrence: None)
  Receive Date: 20090206
  Receipt Date: 20090202
  Transmission Date: 20090719
  Serious: Yes (Hospitalization)
  Sender: FDA-Public Use
  Company Number: US-B.I. PHARMACEUTICALS,INC./RIDGEFIELD-2007-BP-24672BP

PATIENT
  Sex: Female

DRUGS (13)
  1. SPIRIVA [Suspect]
     Indication: CHRONIC OBSTRUCTIVE PULMONARY DISEASE
     Dosage: 18MCG
     Route: 055
     Dates: start: 20040101
  2. SPIRIVA [Suspect]
     Indication: BRONCHITIS
  3. SPIRIVA [Suspect]
     Indication: ASTHMA
  4. BP MED [Concomitant]
  5. PULMICORT-100 [Concomitant]
     Indication: CHRONIC OBSTRUCTIVE PULMONARY DISEASE
  6. MAXAIR [Concomitant]
     Indication: CHRONIC OBSTRUCTIVE PULMONARY DISEASE
  7. LOVAZA [Concomitant]
     Indication: PROPHYLAXIS
  8. MAXZIDE [Concomitant]
     Indication: HYPERTENSION
  9. XYZAL [Concomitant]
     Indication: HYPERSENSITIVITY
  10. PREMARIN [Concomitant]
     Indication: HORMONE REPLACEMENT THERAPY
  11. PREMARIN [Concomitant]
     Indication: HYSTERECTOMY
  12. NASONEX [Concomitant]
     Indication: HYPERSENSITIVITY
  13. UNKNOWN OTHERS [Concomitant]

REACTIONS (9)
  - BLOOD POTASSIUM DECREASED [None]
  - CATARACT [None]
  - DIABETES MELLITUS [None]
  - EYE INFECTION [None]
  - EYE PAIN [None]
  - GASTROOESOPHAGEAL REFLUX DISEASE [None]
  - HEADACHE [None]
  - KERATOCONJUNCTIVITIS SICCA [None]
  - THYROID DISORDER [None]
